FAERS Safety Report 8479889-5 (Version None)
Quarter: 2012Q2

REPORT INFORMATION
  Report Type: 
  Country: None (occurrence: None)
  Receive Date: 20120629
  Receipt Date: 20120626
  Transmission Date: 20120825
  Serious: Yes (Death, Hospitalization, Other)
  Sender: FDA-Public Use
  Company Number: CA-ABBOTT-12P-028-0940050-00

PATIENT
  Sex: Male
  Weight: 90.346 kg

DRUGS (1)
  1. HUMIRA [Suspect]
     Indication: PSORIASIS
     Route: 058
     Dates: start: 20090714, end: 20091125

REACTIONS (7)
  - PORTAL HYPERTENSION [None]
  - HEPATIC NEOPLASM MALIGNANT [None]
  - ASCITES [None]
  - HEPATIC ENCEPHALOPATHY [None]
  - DRUG INEFFECTIVE [None]
  - PERITONITIS BACTERIAL [None]
  - RENAL FAILURE [None]
